FAERS Safety Report 23208068 (Version 2)
Quarter: 2024Q3

REPORT INFORMATION
  Report Type: Spontaneous
  Country: CA (occurrence: CA)
  Receive Date: 20231121
  Receipt Date: 20240921
  Transmission Date: 20241017
  Serious: Yes (Other)
  Sender: CELLTRION
  Company Number: CA-CELLTRION INC.-2023CA022056

PATIENT

DRUGS (5)
  1. HADLIMA [Suspect]
     Active Substance: ADALIMUMAB-BWWD
     Indication: Psoriatic arthropathy
     Dosage: 40 MILLIGRAM 1 EVERY 2 WEEKS
     Route: 065
  2. ADALIMUMAB [Suspect]
     Active Substance: ADALIMUMAB
     Indication: Psoriatic arthropathy
     Dosage: 40 MILLIGRAM 1 EVERY 2 WEEKS
     Route: 065
  3. HUMIRA [Concomitant]
     Active Substance: ADALIMUMAB
     Indication: Product used for unknown indication
     Route: 065
  4. METFORMIN [Concomitant]
     Active Substance: METFORMIN HYDROCHLORIDE
     Indication: Product used for unknown indication
     Route: 065
  5. PROGESTERONE [Concomitant]
     Active Substance: PROGESTERONE
     Indication: Product used for unknown indication
     Route: 065

REACTIONS (9)
  - Chromaturia [Recovered/Resolved]
  - Nephrolithiasis [Recovered/Resolved]
  - Psoriatic arthropathy [Recovered/Resolved]
  - Dehydration [Recovered/Resolved]
  - Headache [Recovered/Resolved]
  - Insomnia [Recovered/Resolved]
  - Sinusitis [Recovered/Resolved]
  - Urinary tract infection [Recovered/Resolved]
  - Weight increased [Recovered/Resolved]
